FAERS Safety Report 22142013 (Version 1)
Quarter: 2023Q1

REPORT INFORMATION
  Report Type: Spontaneous
  Country: US (occurrence: None)
  Receive Date: 20230326
  Receipt Date: 20230326
  Transmission Date: 20230417
  Serious: Yes (Other)
  Sender: FDA-Public Use
  Company Number: None

PATIENT
  Age: 63 Year
  Sex: Female
  Weight: 74.25 kg

DRUGS (8)
  1. TAPINAROF [Suspect]
     Active Substance: TAPINAROF
     Indication: Dermatitis
     Dosage: FREQUENCY : TWICE A DAY;?
     Route: 061
     Dates: start: 20230217, end: 20230218
  2. LYSINE [Concomitant]
     Active Substance: LYSINE
  3. VITAMIN C [Concomitant]
     Active Substance: ASCORBIC ACID
  4. ZINC [Concomitant]
     Active Substance: ZINC
  5. cranberry capsules [Concomitant]
  6. VITAMIN D [Concomitant]
     Active Substance: VITAMIN D NOS
  7. cardio-plus standard process [Concomitant]
  8. immuplex standard process [Concomitant]

REACTIONS (8)
  - Skin reaction [None]
  - Urticaria [None]
  - Genital rash [None]
  - Burning sensation [None]
  - Blister [None]
  - Pruritus [None]
  - Pain [None]
  - Skin exfoliation [None]

NARRATIVE: CASE EVENT DATE: 20230217
